FAERS Safety Report 17452932 (Version 1)
Quarter: 2020Q1

REPORT INFORMATION
  Report Type: Spontaneous
  Country: GB (occurrence: GB)
  Receive Date: 20200224
  Receipt Date: 20200224
  Transmission Date: 20200409
  Serious: Yes (Other)
  Sender: FDA-Public Use
  Company Number: GB-MYLANLABS-2020M1018960

PATIENT
  Age: 72 Year
  Sex: Female
  Weight: 90 kg

DRUGS (19)
  1. TICAGRELOR. [Concomitant]
     Active Substance: TICAGRELOR
     Dosage: 2 DOSAGE FORM, QD
     Dates: start: 20190923
  2. METHOTREXATE. [Concomitant]
     Active Substance: METHOTREXATE
     Dosage: PEN: USE AS DIRECTED
     Dates: start: 20190918
  3. HUMALOG [Concomitant]
     Active Substance: INSULIN LISPRO
     Dosage: USE AS DIRECTED
     Dates: start: 20190416
  4. LINAGLIPTIN [Concomitant]
     Active Substance: LINAGLIPTIN
     Dosage: 1ST LINE GLIPTIN (IF CREATININE CLEARANCE {50ML/MIN). TAKE ONE ...
     Dates: start: 20190416
  5. GLYCERYL TRINITRATE [Concomitant]
     Active Substance: NITROGLYCERIN
     Indication: ANGINA PECTORIS
     Dosage: FOR ANGINA PAIN. SPRAY ONE OR TWO DOSES UNDER T...
     Dates: start: 20191008
  6. EZETIMIBE. [Concomitant]
     Active Substance: EZETIMIBE
     Dosage: 1 DOSAGE FORM, QD
     Dates: start: 20190416
  7. COCODAMOL [Concomitant]
     Active Substance: ACETAMINOPHEN\CODEINE PHOSPHATE
     Dosage: 1-2 TO BE TAKEN FOUR TIMES DAILY
     Dates: start: 20191008, end: 20191105
  8. CETIRIZINE [Concomitant]
     Active Substance: CETIRIZINE HYDROCHLORIDE
     Dosage: 1 UNK, QD
     Dates: start: 20190416
  9. FOLIC ACID. [Concomitant]
     Active Substance: FOLIC ACID
     Dosage: EXCEPT FOR METHOTRXATE DAY
     Dates: start: 20190803
  10. SALBUTAMOL [Concomitant]
     Active Substance: ALBUTEROL
     Dosage: 2 DOSAGE FORM
     Route: 055
     Dates: start: 20190923
  11. AMOXICILLIN. [Concomitant]
     Active Substance: AMOXICILLIN
     Dosage: 3 DOSAGE FORM, QD
     Dates: start: 20191129, end: 20191204
  12. ACETYLSALICYLIC ACID [Concomitant]
     Active Substance: ASPIRIN
     Dosage: 1 DOSAGE FORM, QD
     Dates: start: 20190416
  13. SUKKARTO [Concomitant]
     Active Substance: METFORMIN HYDROCHLORIDE
     Dosage: 2 DOSAGE FORM, QD
     Dates: start: 20190416
  14. AMLODIPINE [Concomitant]
     Active Substance: AMLODIPINE BESYLATE
     Dosage: MORNING
     Dates: start: 20191119
  15. OMEPRAZOLE. [Concomitant]
     Active Substance: OMEPRAZOLE
     Dosage: TAKE TWO DAILY
     Dates: start: 20190416
  16. PREDNISOLONE. [Concomitant]
     Active Substance: PREDNISOLONE
     Indication: ASTHMA
     Dosage: 8 DOSAGE FORM, QD
     Dates: start: 20191129
  17. BISOPROLOL [Suspect]
     Active Substance: BISOPROLOL
     Indication: PRODUCT USED FOR UNKNOWN INDICATION
     Dosage: 2 MORNING AND ONE NIGHT
     Dates: start: 20190917
  18. DILTIAZEM. [Concomitant]
     Active Substance: DILTIAZEM
     Dosage: 2 DOSAGE FORM, QD
     Dates: start: 20191205
  19. CANDESARTAN. [Concomitant]
     Active Substance: CANDESARTAN
     Dosage: 1 DOSAGE FORM, QD
     Dates: start: 20190416

REACTIONS (3)
  - Condition aggravated [Unknown]
  - Wheezing [Recovering/Resolving]
  - Dyspnoea [Unknown]

NARRATIVE: CASE EVENT DATE: 20191209
